FAERS Safety Report 7091796-1 (Version None)
Quarter: 2010Q4

REPORT INFORMATION
  Report Type: 
  Country: None (occurrence: None)
  Receive Date: 20101101
  Receipt Date: 20101022
  Transmission Date: 20110411
  Serious: Yes (Hospitalization)
  Sender: FDA-Public Use
  Company Number: 100212

PATIENT
  Age: 76 Year
  Sex: Female
  Weight: 71.6683 kg

DRUGS (2)
  1. SUPREP BOWEL PREP KIT [Suspect]
     Indication: COLONOSCOPY
     Dosage: 1.5 X 6OZ.BOTTLE/1X/PO
     Route: 048
     Dates: start: 20101021, end: 20101022
  2. CLARITIN [Concomitant]

REACTIONS (4)
  - CHEST PAIN [None]
  - DEHYDRATION [None]
  - PRURITUS [None]
  - RASH MACULO-PAPULAR [None]
